FAERS Safety Report 4456905-9 (Version None)
Quarter: 2004Q3

REPORT INFORMATION
  Report Type: 
  Country: None (occurrence: None)
  Receive Date: 20040923
  Receipt Date: 20040816
  Transmission Date: 20050211
  Serious: Yes (Other)
  Sender: FDA-Public Use
  Company Number: DE-ROCHE-378004

PATIENT
  Age: 13 Year
  Sex: Male

DRUGS (1)
  1. ROCEPHIN [Suspect]
     Indication: BORRELIA INFECTION
     Route: 042
     Dates: start: 20040809, end: 20040819

REACTIONS (1)
  - PYREXIA [None]
